FAERS Safety Report 4405528-6 (Version None)
Quarter: 2004Q3

REPORT INFORMATION
  Report Type: 
  Country: None (occurrence: None)
  Receive Date: 20040723
  Receipt Date: 20030922
  Transmission Date: 20050211
  Serious: No
  Sender: FDA-Public Use
  Company Number: US-GLAXOSMITHKLINE-A0426945A

PATIENT
  Age: 70 Year
  Sex: Male

DRUGS (11)
  1. AVANDIA [Suspect]
     Dosage: 4MG PER DAY
     Route: 048
     Dates: start: 20030101
  2. ZYRTEC [Concomitant]
  3. RYTHMOL [Concomitant]
  4. POTASSIUM [Concomitant]
  5. ACCURETIC [Concomitant]
  6. FUROSEMIDE [Concomitant]
  7. DIGOXIN [Concomitant]
  8. ALPRAZOLAM [Concomitant]
  9. GLUCOTROL [Concomitant]
  10. TERAZOSIN HCL [Concomitant]
  11. LIPITOR [Concomitant]

REACTIONS (3)
  - DIZZINESS [None]
  - DYSPNOEA [None]
  - PALPITATIONS [None]
